FAERS Safety Report 17208991 (Version 2)
Quarter: 2020Q1

REPORT INFORMATION
  Report Type: Spontaneous
  Country: SK (occurrence: SK)
  Receive Date: 20191227
  Receipt Date: 20200108
  Transmission Date: 20200409
  Serious: Yes (Other)
  Sender: FDA-Public Use
  Company Number: SK-JNJFOC-20191233506

PATIENT
  Age: 30 Year
  Sex: Male

DRUGS (4)
  1. REMICADE [Suspect]
     Active Substance: INFLIXIMAB
     Route: 042
     Dates: start: 20150707
  2. REMICADE [Suspect]
     Active Substance: INFLIXIMAB
     Indication: COLITIS ULCERATIVE
     Dosage: 500 MG, SINGLE, INJECTION; IN TOTAL
     Route: 042
     Dates: start: 20150913, end: 20150913
  3. REMICADE [Suspect]
     Active Substance: INFLIXIMAB
     Dosage: 500 MG, SINGLE, INJECTION; IN TOTAL
     Route: 042
     Dates: start: 20150721, end: 20150721
  4. REMICADE [Suspect]
     Active Substance: INFLIXIMAB
     Dosage: 500 MG, SINGLE, INJECTION; IN TOTAL
     Route: 042
     Dates: start: 20150818, end: 20150818

REACTIONS (2)
  - Disseminated tuberculosis [Recovered/Resolved]
  - Meningitis tuberculous [Recovered/Resolved]
